FAERS Safety Report 8421285-0 (Version None)
Quarter: 2012Q2

REPORT INFORMATION
  Report Type: 
  Country: None (occurrence: None)
  Receive Date: 20120604
  Receipt Date: 20120604
  Transmission Date: 20120825
  Serious: Yes (Hospitalization)
  Sender: FDA-Public Use
  Company Number: None

PATIENT
  Age: 61 Year
  Sex: Male
  Weight: 81.1 kg

DRUGS (2)
  1. DOCETAXEL [Suspect]
     Indication: OESOPHAGEAL CARCINOMA
     Dosage: 50 MG ONCE IV
     Route: 042
     Dates: start: 20120209, end: 20120216
  2. IRINOTECAN HCL [Suspect]
     Indication: OESOPHAGEAL CARCINOMA
     Dosage: 200 MG ONCE IV
     Route: 042
     Dates: start: 20120209, end: 20120216

REACTIONS (13)
  - NAUSEA [None]
  - HEPATIC ENZYME INCREASED [None]
  - DEHYDRATION [None]
  - HICCUPS [None]
  - BLOOD BILIRUBIN INCREASED [None]
  - CLOSTRIDIAL INFECTION [None]
  - RETCHING [None]
  - HYPOPHAGIA [None]
  - VOMITING [None]
  - NO THERAPEUTIC RESPONSE [None]
  - DIARRHOEA [None]
  - BLOOD ALKALINE PHOSPHATASE INCREASED [None]
  - PNEUMONIA [None]
